FAERS Safety Report 5587874-6 (Version None)
Quarter: 2008Q1

REPORT INFORMATION
  Report Type: 
  Country: None (occurrence: None)
  Receive Date: 20080111
  Receipt Date: 20080110
  Transmission Date: 20080703
  Serious: Yes (Hospitalization)
  Sender: FDA-Public Use
  Company Number: US-BRISTOL-MYERS SQUIBB COMPANY-14037162

PATIENT
  Sex: Male

DRUGS (1)
  1. TEQUIN [Suspect]
     Dates: start: 20050701

REACTIONS (1)
  - HYPERGLYCAEMIA [None]
